FAERS Safety Report 17352321 (Version 1)
Quarter: 2020Q1

REPORT INFORMATION
  Report Type: Spontaneous
  Country: US (occurrence: US)
  Receive Date: 20200130
  Receipt Date: 20200130
  Transmission Date: 20200409
  Serious: Yes (Death, Hospitalization, Other)
  Sender: FDA-Public Use
  Company Number: US-AMGEN-USASP2020013993

PATIENT
  Age: 62 Year
  Sex: Female

DRUGS (4)
  1. CISPLATIN. [Concomitant]
     Active Substance: CISPLATIN
     Indication: SMALL CELL LUNG CANCER EXTENSIVE STAGE
     Dosage: 60 MILLIGRAM/SQ. METER, Q3WK(DAYS 1-3) CYCLIC
  2. ETOPOSIDE. [Concomitant]
     Active Substance: ETOPOSIDE
     Indication: SMALL CELL LUNG CANCER EXTENSIVE STAGE
     Dosage: 120 MILLIGRAM/SQ. METER Q3WK(DAY 1 OF A 21 DAY CYCLE ) CYCLIC
  3. GOSSYPOL ACETIC ACID [Concomitant]
     Indication: SMALL CELL LUNG CANCER EXTENSIVE STAGE
     Dosage: 40 MILLIGRAM, BID (DAYS 1-3) CYCLIC
     Route: 048
  4. NEULASTA [Suspect]
     Active Substance: PEGFILGRASTIM
     Indication: PROPHYLAXIS
     Dosage: UNK UNK, CYCLICAL
     Route: 065

REACTIONS (3)
  - Cerebrovascular accident [Recovering/Resolving]
  - Atrial fibrillation [Unknown]
  - Cardiac arrest [Fatal]
